FAERS Safety Report 5382967-0 (Version None)
Quarter: 2007Q3

REPORT INFORMATION
  Report Type: 
  Country: None (occurrence: None)
  Receive Date: 20070710
  Receipt Date: 20070703
  Transmission Date: 20080115
  Serious: Yes (Other)
  Sender: FDA-Public Use
  Company Number: A0662301A

PATIENT
  Age: 33 Year
  Sex: Female

DRUGS (14)
  1. ZIAGEN [Suspect]
     Indication: DRUG USE FOR UNKNOWN INDICATION
     Dosage: 300MG PER DAY
     Route: 048
  2. AMITRIPTYLINE HCL [Concomitant]
     Route: 048
  3. ATAZANAVIR SULFATE [Concomitant]
  4. AZITHROMYCIN [Concomitant]
     Route: 048
  5. BENADRYL [Concomitant]
     Route: 048
  6. CALCIUM CARBONATE [Concomitant]
     Route: 048
  7. CELEBREX [Concomitant]
     Route: 048
  8. FLUTICASONE PROPIONATE [Concomitant]
     Route: 055
  9. OXYBUTYNIN CHLORIDE [Concomitant]
     Route: 048
  10. PHENYTOIN [Concomitant]
     Route: 048
  11. PREDNISONE TAB [Concomitant]
     Route: 048
  12. RANITIDINE [Concomitant]
     Route: 048
  13. RITONAVIR [Concomitant]
  14. TENOFOVIR [Concomitant]

REACTIONS (6)
  - ARTHRALGIA [None]
  - EYELID OEDEMA [None]
  - LIP SWELLING [None]
  - LYMPHADENOPATHY [None]
  - PYREXIA [None]
  - RASH MACULAR [None]
